FAERS Safety Report 9350277 (Version 2)
Quarter: 2013Q4

REPORT INFORMATION
  Report Type: Spontaneous
  Country: US (occurrence: US)
  Receive Date: 20130617
  Receipt Date: 20131129
  Transmission Date: 20140711
  Serious: Yes (Other)
  Sender: FDA-Public Use
  Company Number: US-ASTRAZENECA-2012SE34588

PATIENT
  Age: 680 Month
  Sex: Female

DRUGS (20)
  1. NEXIUM [Suspect]
     Indication: GASTROOESOPHAGEAL REFLUX DISEASE
     Route: 048
  2. NEXIUM [Suspect]
     Indication: GASTROOESOPHAGEAL REFLUX DISEASE
     Route: 048
     Dates: start: 20070314
  3. PRILOSEC [Suspect]
     Route: 048
  4. VITAMINS [Concomitant]
     Dosage: ONCE A DAY
  5. VALTREX [Concomitant]
  6. PHENARGAN [Concomitant]
  7. LISINOPRIL [Concomitant]
  8. TEGRETOL [Concomitant]
     Indication: CONVULSION
  9. ATRIPLA [Concomitant]
  10. COPEGUS [Concomitant]
  11. PEGUS [Concomitant]
     Indication: LIVER DISORDER
     Dosage: EVERY TUESDAY
  12. NORVASC [Concomitant]
  13. PROZAC [Concomitant]
  14. FOLIC ACID [Concomitant]
  15. ALBUTEROL [Concomitant]
     Indication: RESPIRATORY DISORDER
     Dosage: TWO TIMES DAILY
  16. ALBUTEROL [Concomitant]
     Indication: CHRONIC OBSTRUCTIVE PULMONARY DISEASE
     Dosage: TWO TIMES DAILY
  17. ADVAIR (PURPLE DISK) [Concomitant]
     Indication: RESPIRATORY DISORDER
     Dosage: TWO TIMES DAILY
  18. PROAIR [Concomitant]
     Indication: CHRONIC OBSTRUCTIVE PULMONARY DISEASE
  19. ARIPIPRAZOLE [Concomitant]
     Dates: start: 20070314
  20. FLUOXETINE [Concomitant]
     Dates: start: 20070206

REACTIONS (5)
  - Cerebrovascular accident [Unknown]
  - Osteoporosis [Unknown]
  - Foot fracture [Unknown]
  - Liver disorder [Unknown]
  - Depression [Unknown]
